FAERS Safety Report 14377258 (Version 1)
Quarter: 2018Q1

REPORT INFORMATION
  Report Type: Spontaneous
  Country: US (occurrence: US)
  Receive Date: 20180111
  Receipt Date: 20180111
  Transmission Date: 20180509
  Serious: No
  Sender: FDA-Public Use
  Company Number: US-DRREDDYS-USA/USA/17/0087045

PATIENT
  Age: 53 Year
  Sex: Male
  Weight: 97.97 kg

DRUGS (1)
  1. HABITROL [Suspect]
     Active Substance: NICOTINE
     Indication: SMOKING CESSATION THERAPY
     Route: 061

REACTIONS (3)
  - Musculoskeletal pain [Recovered/Resolved]
  - Arthritis [Recovered/Resolved]
  - Peripheral swelling [Recovering/Resolving]
